FAERS Safety Report 4604800-4 (Version None)
Quarter: 2005Q2

REPORT INFORMATION
  Report Type: 
  Country: None (occurrence: None)
  Receive Date: 20050224
  Receipt Date: 20041228
  Transmission Date: 20051028
  Serious: Yes (Hospitalization, Disabling)
  Sender: FDA-Public Use
  Company Number: 04P-163-0284975-00

PATIENT
  Age: 23 Year
  Sex: Female

DRUGS (2)
  1. VICODIN [Suspect]
     Dosage: PER ORAL
     Route: 048
  2. CYANOCOBALAMIN [Concomitant]

REACTIONS (4)
  - DEAFNESS [None]
  - DRUG DEPENDENCE [None]
  - PAIN IN EXTREMITY [None]
  - SWELLING FACE [None]
